FAERS Safety Report 4377055-6 (Version None)
Quarter: 2004Q2

REPORT INFORMATION
  Report Type: 
  Country: None (occurrence: None)
  Receive Date: 20040614
  Receipt Date: 20040511
  Transmission Date: 20050107
  Serious: Yes (Other)
  Sender: FDA-Public Use
  Company Number: GB-ROCHE-367264

PATIENT
  Age: 64 Year
  Sex: Female

DRUGS (6)
  1. VESANOID [Suspect]
     Indication: ACUTE PROMYELOCYTIC LEUKAEMIA
     Dosage: FOR 15 DAYS EVERY 3 MONTHS.  TREATMENT CYCLE 3 RAN FROM 9 JANUARY, 2004, TO 24 JANUARY, 2004.
     Route: 048
  2. RAMIPRIL [Concomitant]
  3. SIMVASTATIN [Concomitant]
  4. ASPIRIN [Concomitant]
  5. VITAMIN E [Concomitant]
  6. CARBAMAZEPINE [Concomitant]

REACTIONS (1)
  - METRORRHAGIA [None]
